FAERS Safety Report 4649099-8 (Version None)
Quarter: 2005Q2

REPORT INFORMATION
  Report Type: 
  Country: None (occurrence: None)
  Receive Date: 20050429
  Receipt Date: 20050428
  Transmission Date: 20051028
  Serious: Yes (Hospitalization)
  Sender: FDA-Public Use
  Company Number: US-GLAXOSMITHKLINE-A0556222A

PATIENT
  Age: 61 Year
  Sex: Female

DRUGS (9)
  1. AVANDIA [Suspect]
     Indication: DIABETES MELLITUS NON-INSULIN-DEPENDENT
     Dosage: 4MG PER DAY
     Route: 048
     Dates: start: 20050421
  2. NORVASC [Concomitant]
  3. PREVACID [Concomitant]
  4. TOPROL-XL [Concomitant]
  5. ISOSORBIDE [Concomitant]
  6. LOVASTATIN [Concomitant]
  7. METOCLOPRAMIDE [Concomitant]
  8. FOLIC ACID [Concomitant]
  9. METOCLOPRAMIDE [Concomitant]

REACTIONS (1)
  - STOMACH DISCOMFORT [None]
